FAERS Safety Report 8884546 (Version 1)
Quarter: 2012Q4

REPORT INFORMATION
  Report Type: 
  Country: DE (occurrence: US)
  Receive Date: 20121104
  Receipt Date: 20121104
  Transmission Date: 20130627
  Serious: Yes (Hospitalization)
  Sender: FDA-Public Use
  Company Number: US-BRISTOL-MYERS SQUIBB COMPANY-17099706

PATIENT
  Age: 20 Year
  Sex: Female

DRUGS (2)
  1. METFORMIN HCL [Suspect]
     Indication: TYPE 2 DIABETES MELLITUS
  2. DROSPIRENONE + ETHINYLESTRADIOL [Suspect]
     Indication: POLYCYSTIC OVARIES
     Route: 048

REACTIONS (6)
  - Autoimmune hepatitis [Recovering/Resolving]
  - Hypergammaglobulinaemia [None]
  - Hepatic fibrosis [None]
  - Cholangitis [None]
  - Liver injury [None]
  - International normalised ratio increased [None]
